FAERS Safety Report 4892412-7 (Version None)
Quarter: 2006Q1

REPORT INFORMATION
  Report Type: 
  Country: None (occurrence: None)
  Receive Date: 20060124
  Receipt Date: 20060111
  Transmission Date: 20060701
  Serious: Yes (Death, Other)
  Sender: FDA-Public Use
  Company Number: 2005170589

PATIENT
  Age: 75 Year
  Sex: Male

DRUGS (7)
  1. VFEND [Suspect]
     Indication: CANDIDIASIS
     Dosage: 400 MG (200 MG, 2 IN 1 D), INTRAVENOUS
     Route: 042
     Dates: start: 20051024
  2. CLAFORAN [Suspect]
     Indication: LUNG INFECTION
     Dosage: 3 GRAM (1 GRAM, 3 IN 1 D), INTRAVENOUS
     Route: 042
     Dates: start: 20051018
  3. FUROSEMIDE [Suspect]
     Indication: RENAL FAILURE
     Dosage: 250 MG, INTRAVENOUS
     Route: 042
     Dates: start: 20051020
  4. METRONIDAZOLE [Concomitant]
  5. ROVAMYCINE (SPIRAMYCIN) [Concomitant]
  6. DOBUTAMINE (DOBUTAMINE) [Concomitant]
  7. SODIUM CHLORIDE 0.9% [Concomitant]

REACTIONS (3)
  - DRUG INTERACTION [None]
  - HAEMODIALYSIS [None]
  - RENAL FAILURE ACUTE [None]
